FAERS Safety Report 9627331 (Version 2)
Quarter: 2013Q4

REPORT INFORMATION
  Report Type: Not Available
  Country: US (occurrence: US)
  Receive Date: 20131016
  Receipt Date: 20131016
  Transmission Date: 20140711
  Serious: Yes (Hospitalization)
  Sender: FDA-Public Use
  Company Number: US-LUNDBECK-DKLU1086026

PATIENT
  Age: 16 Year
  Sex: Female

DRUGS (2)
  1. SABRIL (TABLET) [Suspect]
     Indication: TUBEROUS SCLEROSIS
  2. SABRIL (TABLET) [Suspect]
     Dates: start: 20120912

REACTIONS (2)
  - Status epilepticus [Unknown]
  - Drug dose omission [Unknown]
